FAERS Safety Report 16685205 (Version 4)
Quarter: 2021Q1

REPORT INFORMATION
  Report Type: Report from Study
  Country: AU (occurrence: AU)
  Receive Date: 20190808
  Receipt Date: 20210303
  Transmission Date: 20210419
  Serious: Yes (Other)
  Sender: FDA-Public Use
  Company Number: PHHO2019AU007966

PATIENT
  Age: 70 Year
  Sex: Male
  Weight: 88 kg

DRUGS (6)
  1. DIOVAN [Suspect]
     Active Substance: VALSARTAN
     Indication: ACUTE MYOCARDIAL INFARCTION
     Dosage: CODE NOT BROKEN
     Route: 048
     Dates: start: 20190205
  2. BLINDED RAMIPRIL [Suspect]
     Active Substance: RAMIPRIL
     Indication: ACUTE MYOCARDIAL INFARCTION
     Dosage: CODE NOT BROKEN
     Route: 048
     Dates: start: 20190205
  3. BLINDED NO TREATMENT RECEIVED [Suspect]
     Active Substance: INVESTIGATIONAL PRODUCT
     Indication: ACUTE MYOCARDIAL INFARCTION
     Dosage: CODE NOT BROKEN
     Route: 048
     Dates: start: 20190205
  4. PLACEBO [Suspect]
     Active Substance: UNSPECIFIED INGREDIENT
     Indication: ACUTE MYOCARDIAL INFARCTION
     Dosage: CODE NOT BROKEN
     Route: 048
     Dates: start: 20190205
  5. BLINDED LCZ696 [Suspect]
     Active Substance: SACUBITRIL\VALSARTAN
     Indication: ACUTE MYOCARDIAL INFARCTION
     Dosage: CODE NOT BROKEN
     Route: 048
     Dates: start: 20190205
  6. METFORMIN [Suspect]
     Active Substance: METFORMIN HYDROCHLORIDE
     Indication: TYPE 2 DIABETES MELLITUS
     Dosage: 1 G, QD
     Route: 048
     Dates: start: 20190204, end: 20190802

REACTIONS (1)
  - Acute kidney injury [Recovered/Resolved]

NARRATIVE: CASE EVENT DATE: 20190802
